FAERS Safety Report 13345927 (Version 1)
Quarter: 2017Q1

REPORT INFORMATION
  Report Type: Spontaneous
  Country: US (occurrence: US)
  Receive Date: 20170317
  Receipt Date: 20170317
  Transmission Date: 20170428
  Serious: Yes (Life-Threatening, Other)
  Sender: FDA-Public Use
  Company Number: None

PATIENT
  Sex: Female
  Weight: 53.57 kg

DRUGS (6)
  1. SYSTANE (HYPROMELLOSE 2910 (4000 MPA.S)) [Concomitant]
     Active Substance: HYPROMELLOSE 2910 (4000 MPA.S)
  2. ACIPHEX [Concomitant]
     Active Substance: RABEPRAZOLE SODIUM
  3. ANTENOLOL [Concomitant]
  4. TYLENOL [Concomitant]
     Active Substance: ACETAMINOPHEN
  5. EYE DROPS [Concomitant]
  6. SYNTHROID [Suspect]
     Active Substance: LEVOTHYROXINE SODIUM
     Indication: THYROID DISORDER
     Dosage: 1 PILL A DAY

REACTIONS (11)
  - Neck mass [None]
  - Heart rate irregular [None]
  - Pyrexia [None]
  - Headache [None]
  - Cough [None]
  - Dyspnoea [None]
  - Musculoskeletal chest pain [None]
  - Chest pain [None]
  - Abdominal pain upper [None]
  - Dry throat [None]
  - Tremor [None]
